FAERS Safety Report 13896885 (Version 2)
Quarter: 2019Q4

REPORT INFORMATION
  Report Type: Report from Study
  Country: US (occurrence: US)
  Receive Date: 20170823
  Receipt Date: 20191113
  Transmission Date: 20200122
  Serious: No
  Sender: FDA-Public Use
  Company Number: PHEH2017US026869

PATIENT
  Sex: Female

DRUGS (4)
  1. ILARIS [Suspect]
     Active Substance: CANAKINUMAB
     Dosage: EVERY 2-3 MONTHS
     Route: 065
     Dates: start: 20170815
  2. ILARIS [Suspect]
     Active Substance: CANAKINUMAB
     Dosage: EVERY 2-3 MONTHS
     Route: 065
     Dates: start: 20170512
  3. ILARIS [Suspect]
     Active Substance: CANAKINUMAB
     Indication: CRYOPYRIN ASSOCIATED PERIODIC SYNDROME
     Dosage: UNK MG
     Route: 065
  4. ILARIS [Suspect]
     Active Substance: CANAKINUMAB
     Dosage: 75 MG (EVERY 12 WEEKS)
     Route: 058

REACTIONS (1)
  - Inappropriate schedule of product administration [Unknown]
